FAERS Safety Report 25403490 (Version 1)
Quarter: 2025Q2

REPORT INFORMATION
  Report Type: Spontaneous
  Country: JP (occurrence: JP)
  Receive Date: 20250605
  Receipt Date: 20250605
  Transmission Date: 20250717
  Serious: Yes (Hospitalization)
  Sender: NOVARTIS
  Company Number: JP-002147023-NVSJ2025JP005880

PATIENT

DRUGS (6)
  1. LUTATHERA [Suspect]
     Active Substance: LUTETIUM OXODOTREOTIDE LU-177
     Indication: Pancreatic neuroendocrine tumour
     Route: 042
     Dates: start: 20241024
  2. LUTATHERA [Suspect]
     Active Substance: LUTETIUM OXODOTREOTIDE LU-177
     Route: 042
     Dates: start: 20241219
  3. LUTATHERA [Suspect]
     Active Substance: LUTETIUM OXODOTREOTIDE LU-177
     Route: 042
     Dates: start: 20250220, end: 20250220
  4. ARGININE\LYSINE [Suspect]
     Active Substance: ARGININE\LYSINE
     Indication: Product used for unknown indication
     Route: 041
     Dates: start: 20241024
  5. ARGININE\LYSINE [Suspect]
     Active Substance: ARGININE\LYSINE
     Route: 041
     Dates: start: 20241219
  6. ARGININE\LYSINE [Suspect]
     Active Substance: ARGININE\LYSINE
     Route: 041
     Dates: start: 20250220, end: 20250220

REACTIONS (2)
  - Epilepsy [Unknown]
  - Cognitive disorder [Unknown]
